FAERS Safety Report 11520684 (Version 1)
Quarter: 2015Q3

REPORT INFORMATION
  Report Type: Spontaneous
  Country: US (occurrence: None)
  Receive Date: 20150917
  Receipt Date: 20150917
  Transmission Date: 20151125
  Serious: Yes (Other)
  Sender: FDA-Public Use
  Company Number: None

PATIENT
  Age: 51 Year
  Sex: Female
  Weight: 77.11 kg

DRUGS (10)
  1. VALTREX [Concomitant]
     Active Substance: VALACYCLOVIR HYDROCHLORIDE
  2. OMEPRAZOLE. [Concomitant]
     Active Substance: OMEPRAZOLE
  3. ZANAFLEX [Concomitant]
     Active Substance: TIZANIDINE HYDROCHLORIDE
  4. SYNTHROID [Concomitant]
     Active Substance: LEVOTHYROXINE SODIUM
  5. AMBIEN [Concomitant]
     Active Substance: ZOLPIDEM TARTRATE
  6. NALTREXONE [Concomitant]
     Active Substance: NALTREXONE
  7. ENBREL [Suspect]
     Active Substance: ETANERCEPT
     Indication: PSORIATIC ARTHROPATHY
     Route: 058
     Dates: start: 20150903, end: 20150910
  8. ESTRADIOL. [Concomitant]
     Active Substance: ESTRADIOL
  9. MAGNESIUM [Suspect]
     Active Substance: MAGNESIUM
  10. CALCIUM [Concomitant]
     Active Substance: CALCIUM

REACTIONS (19)
  - Injection site pain [None]
  - Peripheral swelling [None]
  - Hypersensitivity [None]
  - Eye irritation [None]
  - Oral mucosal exfoliation [None]
  - Injection site swelling [None]
  - Body temperature fluctuation [None]
  - Joint swelling [None]
  - Ear discomfort [None]
  - Vulvovaginal mycotic infection [None]
  - Glossodynia [None]
  - Oral discomfort [None]
  - Pain [None]
  - Chills [None]
  - Butterfly rash [None]
  - Oral pain [None]
  - Burning sensation [None]
  - Burning sensation mucosal [None]
  - Pruritus generalised [None]

NARRATIVE: CASE EVENT DATE: 20150910
